FAERS Safety Report 12955642 (Version 1)
Quarter: 2016Q4

REPORT INFORMATION
  Report Type: Spontaneous
  Country: ES (occurrence: ES)
  Receive Date: 20161118
  Receipt Date: 20161118
  Transmission Date: 20170207
  Serious: Yes (Hospitalization)
  Sender: FDA-Public Use
  Company Number: ES-SA-2016SA210071

PATIENT
  Age: 73 Year
  Sex: Male

DRUGS (1)
  1. BCG FOR IMMUNOTHERAPY [Suspect]
     Active Substance: BACILLUS CALMETTE-GUERIN ANTIGEN, UNSPECIFIED SUBSTRAIN
     Indication: BLADDER CANCER
     Route: 043

REACTIONS (6)
  - Alveolitis allergic [Recovered/Resolved]
  - Asthenia [Recovered/Resolved]
  - Nodule [Recovered/Resolved]
  - Discomfort [Recovered/Resolved]
  - Lung consolidation [Recovered/Resolved]
  - Pyrexia [Recovered/Resolved]
